FAERS Safety Report 4337428-4 (Version None)
Quarter: 2004Q2

REPORT INFORMATION
  Report Type: 
  Country: None (occurrence: None)
  Receive Date: 20040407
  Receipt Date: 20040325
  Transmission Date: 20050107
  Serious: Yes (Other)
  Sender: FDA-Public Use
  Company Number: 2004018486

PATIENT
  Age: 38 Year
  Sex: Female
  Weight: 66.5 kg

DRUGS (7)
  1. RELPAX [Suspect]
     Indication: ILL-DEFINED DISORDER
     Dosage: (BID), ORAL
     Route: 048
     Dates: start: 20030101, end: 20040301
  2. FLUOXETINE HCL [Concomitant]
  3. LEVOTHYROXINE SODIUM [Concomitant]
  4. METOPROLOL TARTRATE [Concomitant]
  5. METOPROLOL (METOPROLOL) [Concomitant]
  6. LEVOTHYROXINE SODIUM [Concomitant]
  7. FLUOXETINE [Concomitant]

REACTIONS (5)
  - ALANINE AMINOTRANSFERASE INCREASED [None]
  - ASPARTATE AMINOTRANSFERASE INCREASED [None]
  - CHOLELITHIASIS [None]
  - GAMMA-GLUTAMYLTRANSFERASE INCREASED [None]
  - MALAISE [None]
